FAERS Safety Report 15428776 (Version 2)
Quarter: 2018Q4

REPORT INFORMATION
  Report Type: Spontaneous
  Country: GB (occurrence: GB)
  Receive Date: 20180926
  Receipt Date: 20181009
  Transmission Date: 20190204
  Serious: Yes (Hospitalization)
  Sender: FDA-Public Use
  Company Number: GB-STRIDES ARCOLAB LIMITED-2018SP008212

PATIENT
  Age: 64 Year
  Sex: Male

DRUGS (5)
  1. METFORMIN [Suspect]
     Active Substance: METFORMIN HYDROCHLORIDE
     Indication: PRODUCT USED FOR UNKNOWN INDICATION
     Dosage: 42 G, UNKNOWN
     Route: 048
  2. PRAVASTATIN. [Suspect]
     Active Substance: PRAVASTATIN
     Indication: PRODUCT USED FOR UNKNOWN INDICATION
     Dosage: 840 MG, UNKNOWN
     Route: 048
  3. NIMODIPINE. [Suspect]
     Active Substance: NIMODIPINE
     Indication: PRODUCT USED FOR UNKNOWN INDICATION
     Dosage: 840 MG, UNKNOWN
     Route: 048
  4. RANITIDINE. [Suspect]
     Active Substance: RANITIDINE
     Indication: PRODUCT USED FOR UNKNOWN INDICATION
     Dosage: 9 G, UNKNOWN
     Route: 048
  5. RISPERIDONE. [Suspect]
     Active Substance: RISPERIDONE
     Indication: PRODUCT USED FOR UNKNOWN INDICATION
     Dosage: 88 MG, UNKNOWN
     Route: 048

REACTIONS (10)
  - Cardiogenic shock [Unknown]
  - Cognitive disorder [Recovered/Resolved]
  - Polyneuropathy [Unknown]
  - Intentional overdose [Unknown]
  - Brain injury [Unknown]
  - Hypotension [Unknown]
  - Cerebral ischaemia [Unknown]
  - Renal failure [Unknown]
  - Sinus bradycardia [Unknown]
  - Lactic acidosis [Unknown]
